FAERS Safety Report 25618930 (Version 1)
Quarter: 2025Q3

REPORT INFORMATION
  Report Type: Spontaneous
  Country: US (occurrence: None)
  Receive Date: 20250729
  Receipt Date: 20250729
  Transmission Date: 20251021
  Serious: Yes (Hospitalization)
  Sender: FDA-CTU
  Company Number: None

PATIENT
  Age: 61 Year
  Sex: Female
  Weight: 58.5 kg

DRUGS (5)
  1. XYZAL ALLERGY 24HR [Suspect]
     Active Substance: LEVOCETIRIZINE DIHYDROCHLORIDE
     Indication: Hypersensitivity
     Route: 048
     Dates: start: 20250714, end: 20250727
  2. ATORVASTATIN [Concomitant]
     Active Substance: ATORVASTATIN
  3. Once daily [Concomitant]
  4. Mirabegron 50 mg. Once daily [Concomitant]
  5. Estradiol cream 3 times a week [Concomitant]

REACTIONS (2)
  - Faecaloma [None]
  - Constipation [None]

NARRATIVE: CASE EVENT DATE: 20250727
